FAERS Safety Report 5202524-6 (Version None)
Quarter: 2006Q4

REPORT INFORMATION
  Report Type: 
  Country: None (occurrence: None)
  Receive Date: 20061019
  Receipt Date: 20060714
  Transmission Date: 20070319
  Serious: Yes (Other)
  Sender: FDA-Public Use
  Company Number: HQWYE098018JUL06

PATIENT
  Age: 49 Year
  Sex: Male

DRUGS (1)
  1. ADVIL PM [Suspect]
     Dosage: 2 CAPLETS X 1, ORAL
     Route: 048
     Dates: start: 20060701, end: 20060701

REACTIONS (1)
  - ANAPHYLACTIC SHOCK [None]
